FAERS Safety Report 9841296 (Version 1)
Quarter: 2013Q4

REPORT INFORMATION
  Report Type: Spontaneous
  Country: BR (occurrence: None)
  Receive Date: 20131211
  Receipt Date: 20131211
  Transmission Date: 20140711
  Serious: Yes (Other)
  Sender: FDA-Public Use
  Company Number: SPV1-2008-02393

PATIENT
  Age: 8 Year
  Sex: Male
  Weight: 34.6 kg

DRUGS (4)
  1. ELAPRASE [Suspect]
     Indication: MUCOPOLYSACCHARIDOSIS II
     Route: 041
     Dates: start: 20030428
  2. N-ACETYLCYSTEINE (ACETYLSCYSTEINE) [Concomitant]
  3. FENOTEROL (FENOTEROL) [Concomitant]
  4. SULPRIDE (LEVOSULPIRIDE) [Concomitant]

REACTIONS (1)
  - Infusion related reaction [None]
